FAERS Safety Report 24227303 (Version 9)
Quarter: 2025Q2

REPORT INFORMATION
  Report Type: Report from Study
  Country: US (occurrence: US)
  Receive Date: 20240820
  Receipt Date: 20250604
  Transmission Date: 20250716
  Serious: Yes (Hospitalization, Other)
  Sender: SUNOVION
  Company Number: US-SUMITOMO PHARMA SWITZERLAND GMBH-2024SPA001041

PATIENT

DRUGS (3)
  1. ORGOVYX [Suspect]
     Active Substance: RELUGOLIX
     Indication: Prostate cancer
     Dosage: 360 MG, SINGLE
     Route: 048
     Dates: start: 20240206, end: 20240206
  2. ORGOVYX [Suspect]
     Active Substance: RELUGOLIX
     Dosage: 120 MG, QD
     Route: 048
     Dates: start: 20240207
  3. NUBEQA [Concomitant]
     Active Substance: DAROLUTAMIDE
     Indication: Prostate cancer
     Dosage: 600 MG, BID
     Route: 065
     Dates: start: 20240206

REACTIONS (21)
  - Tooth infection [Unknown]
  - Kidney infection [Recovering/Resolving]
  - Brain injury [Unknown]
  - Abscess jaw [Unknown]
  - Limb injury [Unknown]
  - Fall [Unknown]
  - Urinary incontinence [Unknown]
  - Tooth extraction [Recovered/Resolved]
  - Bladder disorder [Unknown]
  - Prostatic disorder [Unknown]
  - Renal disorder [Unknown]
  - Cough [Unknown]
  - Rhinorrhoea [Unknown]
  - Road traffic accident [Unknown]
  - Incontinence [Unknown]
  - Presyncope [Unknown]
  - Dehydration [Unknown]
  - Lung disorder [Unknown]
  - Pain [Unknown]
  - White blood cell count decreased [Unknown]
  - Cystitis [Recovering/Resolving]
